FAERS Safety Report 13027913 (Version 1)
Quarter: 2016Q4

REPORT INFORMATION
  Report Type: Spontaneous
  Country: US (occurrence: US)
  Receive Date: 20161214
  Receipt Date: 20161214
  Transmission Date: 20170207
  Serious: No
  Sender: FDA-Public Use
  Company Number: US-PFIZER INC-2016574778

PATIENT
  Age: 63 Year
  Sex: Female
  Weight: 52.16 kg

DRUGS (1)
  1. LYRICA [Suspect]
     Active Substance: PREGABALIN
     Dosage: 100 MG, UNK

REACTIONS (3)
  - Pain [Recovered/Resolved]
  - Drug withdrawal syndrome [Recovered/Resolved]
  - Depression [Recovered/Resolved]
